FAERS Safety Report 7509901-9 (Version None)
Quarter: 2011Q2

REPORT INFORMATION
  Report Type: 
  Country: None (occurrence: None)
  Receive Date: 20110527
  Receipt Date: 20110520
  Transmission Date: 20111010
  Serious: Yes (Life-Threatening, Hospitalization)
  Sender: FDA-Public Use
  Company Number: TH-B.I. PHARMACEUTICALS,INC./RIDGEFIELD-2011-DE-03206GD

PATIENT
  Age: 36 Year
  Sex: Male

DRUGS (1)
  1. LAMIVUDINE STAVUDINE NEVIRAPINE [Suspect]
     Indication: HIV INFECTION
     Dosage: STAVUDINE 30 MG/LAMIVUDINE 150 MG/NEVIRAPINE 300 MG TWICE A DAY
     Dates: end: 20080701

REACTIONS (14)
  - DYSPNOEA [None]
  - SOMNOLENCE [None]
  - PULMONARY CONGESTION [None]
  - OLIGURIA [None]
  - LACTIC ACIDOSIS [None]
  - NAUSEA [None]
  - ABDOMINAL PAIN UPPER [None]
  - HEPATOMEGALY [None]
  - VOMITING [None]
  - HYPERGLYCAEMIA [None]
  - RENAL FAILURE ACUTE [None]
  - PERIPHERAL SENSORIMOTOR NEUROPATHY [None]
  - MUSCULAR WEAKNESS [None]
  - CARDIO-RESPIRATORY ARREST [None]
